FAERS Safety Report 20512960 (Version 1)
Quarter: 2022Q1

REPORT INFORMATION
  Report Type: Other
  Country: US (occurrence: None)
  Receive Date: 20220224
  Receipt Date: 20220224
  Transmission Date: 20220423
  Serious: No
  Sender: FDA-Public Use
  Company Number: US-ROCHE-3028780

PATIENT
  Sex: Female

DRUGS (8)
  1. OCREVUS [Suspect]
     Active Substance: OCRELIZUMAB
     Indication: Relapsing multiple sclerosis
     Dosage: 300 MG DAY 1 AND 300 MG ON DAY 15 THEN 600 MG IN EVERY 6 MONTHS
     Route: 042
  2. MOBIC [Concomitant]
     Active Substance: MELOXICAM
  3. RETIN-A [Concomitant]
     Active Substance: TRETINOIN
  4. WELLBUTRIN XL [Concomitant]
     Active Substance: BUPROPION HYDROCHLORIDE
  5. ALDACTONE [Concomitant]
     Active Substance: SPIRONOLACTONE
  6. ADDERALL [Concomitant]
     Active Substance: AMPHETAMINE ASPARTATE\AMPHETAMINE SULFATE\DEXTROAMPHETAMINE SACCHARATE\DEXTROAMPHETAMINE SULFATE
  7. EPIPEN [Concomitant]
     Active Substance: EPINEPHRINE
  8. LAMICTAL [Concomitant]
     Active Substance: LAMOTRIGINE

REACTIONS (2)
  - COVID-19 [Recovered/Resolved]
  - Off label use [Unknown]
